FAERS Safety Report 5173288-X (Version None)
Quarter: 2006Q4

REPORT INFORMATION
  Report Type: 
  Country: None (occurrence: None)
  Receive Date: 20061214
  Receipt Date: 20061204
  Transmission Date: 20070319
  Serious: Yes (Disabling)
  Sender: FDA-Public Use
  Company Number: GB-AMGEN-UK202504

PATIENT
  Age: 75 Year
  Sex: Male
  Weight: 79 kg

DRUGS (12)
  1. ARANESP [Suspect]
     Indication: RENAL FAILURE CHRONIC
     Route: 058
     Dates: start: 20060401
  2. ALLOPURINOL [Concomitant]
  3. ASPIRIN [Concomitant]
     Route: 048
  4. BECLOMETHASONE DIPROPIONATE [Concomitant]
  5. DIGOXIN [Concomitant]
  6. FUROSEMIDE [Concomitant]
  7. LANSOPRAZOLE [Concomitant]
     Route: 048
  8. LISINOPRIL [Concomitant]
  9. SALBUTAMOL [Concomitant]
  10. SALMETEROL [Concomitant]
  11. SIMVASTATIN [Concomitant]
  12. TIOTROPIUM BROMIDE [Concomitant]

REACTIONS (1)
  - RETINAL ARTERY OCCLUSION [None]
